FAERS Safety Report 10052109 (Version 1)
Quarter: 2014Q2

REPORT INFORMATION
  Report Type: Spontaneous
  Country: AU (occurrence: AU)
  Receive Date: 20140402
  Receipt Date: 20140402
  Transmission Date: 20141212
  Serious: Yes (Hospitalization)
  Sender: FDA-Public Use
  Company Number: AU-ASTRAZENECA-2014SE21255

PATIENT
  Age: 24601 Day
  Sex: Male

DRUGS (2)
  1. ATACAND PLUS [Suspect]
     Dosage: 32/12.5MG 1 TIME
     Route: 048
     Dates: start: 20000101
  2. VOLTAREN [Suspect]
     Route: 048
     Dates: start: 20140220, end: 20140220

REACTIONS (2)
  - Chest pain [Unknown]
  - Blood creatinine increased [Unknown]
